FAERS Safety Report 18192433 (Version 2)
Quarter: 2021Q2

REPORT INFORMATION
  Report Type: Spontaneous
  Country: AU (occurrence: AU)
  Receive Date: 20200825
  Receipt Date: 20210401
  Transmission Date: 20210717
  Serious: Yes (Hospitalization, Other)
  Sender: FDA-Public Use
  Company Number: AU-LEADINGPHARMA-AU-2020LEALIT00134

PATIENT
  Age: 33 Year
  Sex: Male

DRUGS (4)
  1. HYDROCHLOROTHIAZIDE TABLETS USP [Suspect]
     Active Substance: HYDROCHLOROTHIAZIDE
     Indication: PRODUCT USED FOR UNKNOWN INDICATION
     Route: 065
  2. DEFERASIROX. [Suspect]
     Active Substance: DEFERASIROX
     Indication: IRON OVERLOAD
     Dosage: DISPERSIBLE TABLET
     Route: 065
  3. DEFERASIROX. [Suspect]
     Active Substance: DEFERASIROX
     Route: 065
  4. DEFEROXAMINE MESYLATE. [Interacting]
     Active Substance: DEFEROXAMINE MESYLATE
     Route: 065

REACTIONS (3)
  - Hyponatraemia [Recovered/Resolved]
  - Fanconi syndrome [Recovered/Resolved]
  - Hypokalaemia [Recovered/Resolved]
